FAERS Safety Report 6369036-8 (Version None)
Quarter: 2009Q3

REPORT INFORMATION
  Report Type: 
  Country: None (occurrence: None)
  Receive Date: 20090922
  Receipt Date: 20090911
  Transmission Date: 20100115
  Serious: Yes (Hospitalization)
  Sender: FDA-Public Use
  Company Number: PHHY2009FR38912

PATIENT
  Sex: Female

DRUGS (3)
  1. TEGRETOL [Suspect]
     Dosage: UNK
  2. PROZAC [Suspect]
     Dosage: 20 MG, QD
  3. PROZAC [Suspect]
     Dosage: 2 DF, QD

REACTIONS (3)
  - CONVULSION [None]
  - OVERDOSE [None]
  - PRESYNCOPE [None]
